FAERS Safety Report 7157316-8 (Version None)
Quarter: 2010Q4

REPORT INFORMATION
  Report Type: 
  Country: None (occurrence: None)
  Receive Date: 20101214
  Receipt Date: 20101130
  Transmission Date: 20110411
  Serious: No
  Sender: FDA-Public Use
  Company Number: US-PFIZER INC-2010160835

PATIENT
  Sex: Female
  Weight: 72.562 kg

DRUGS (6)
  1. GENOTROPIN [Suspect]
     Indication: HYPOPITUITARISM
     Dosage: 0.6 MG, UNK
     Route: 058
     Dates: start: 20100801, end: 20101128
  2. NUTROPIN [Suspect]
     Indication: HYPOPITUITARISM
     Dosage: 0.2 MG, UNK
     Dates: start: 20090601, end: 20100801
  3. LIOTHYRONINE [Concomitant]
     Indication: THYROID DISORDER
     Dosage: 5 MCG, UNK
  4. LEVOTHYROXINE [Concomitant]
     Indication: THYROID DISORDER
     Dosage: 88 MCG, 1X/DAY
  5. SERRAPEPTASE [Concomitant]
     Indication: DYSPEPSIA
     Dosage: 20000 MG, 1X/DAY
     Dates: start: 20090901
  6. ESTROGENS [Concomitant]

REACTIONS (6)
  - ABDOMINAL DISCOMFORT [None]
  - ALLERGY TO CHEMICALS [None]
  - PAIN IN EXTREMITY [None]
  - PALPITATIONS [None]
  - POLLAKIURIA [None]
  - RASH [None]
